FAERS Safety Report 24132545 (Version 1)
Quarter: 2024Q3

REPORT INFORMATION
  Report Type: Spontaneous
  Country: CN (occurrence: CN)
  Receive Date: 20240724
  Receipt Date: 20240724
  Transmission Date: 20241016
  Serious: Yes (Hospitalization)
  Sender: PAREXEL
  Company Number: CN-SHANGHAI JUNSHI BIOSCIENCES CO., LTD.-CN2024010672

PATIENT

DRUGS (3)
  1. TORIPALIMAB [Suspect]
     Active Substance: TORIPALIMAB
     Indication: Undifferentiated nasopharyngeal carcinoma
     Dosage: 240 MG, Q3W
     Route: 041
     Dates: start: 20240402, end: 20240403
  2. GEMCITABINE HYDROCHLORIDE [Suspect]
     Active Substance: GEMCITABINE HYDROCHLORIDE
     Indication: Undifferentiated nasopharyngeal carcinoma
     Dosage: 1.3 G (1000MG/M^2)(D1,D8), EVERY 3 WEEKS AS A CYCLE
     Route: 041
     Dates: start: 20240402
  3. CISPLATIN [Suspect]
     Active Substance: CISPLATIN
     Indication: Undifferentiated nasopharyngeal carcinoma
     Dosage: 33 MG (75MG/M^2)(D1-D3, QD), EVERY 3 WEEKS AS A CYCLE
     Route: 041
     Dates: start: 20240402, end: 20240404

REACTIONS (1)
  - Myelosuppression [Recovered/Resolved]

NARRATIVE: CASE EVENT DATE: 20240418
